FAERS Safety Report 19194130 (Version 2)
Quarter: 2021Q2

REPORT INFORMATION
  Report Type: Spontaneous
  Country: JP (occurrence: JP)
  Receive Date: 20210429
  Receipt Date: 20210510
  Transmission Date: 20210717
  Serious: Yes (Hospitalization)
  Sender: FDA-Public Use
  Company Number: JP-TEVA-2021-JP-1906998

PATIENT
  Age: 68 Year
  Sex: Female

DRUGS (4)
  1. OXALIPLATIN. [Suspect]
     Active Substance: OXALIPLATIN
     Indication: GASTRIC CANCER
     Dosage: DAY 1, 3 WEEKLY. SHE RECEIVED 4 COURSES OF OXALIPLATIN
     Route: 065
     Dates: start: 2019, end: 2019
  2. TS?1 [Suspect]
     Active Substance: GIMERACIL\OTERACIL\TEGAFUR
     Indication: GASTRIC CANCER
     Dosage: 80MG/M2/DAY FOR 2 WEEKS, 1WEEK DRUG HOLIDAY, SHE RECEIVED 4 COURSES OF GIMERACIL/OTERACIL/TEGAFUR
     Route: 065
     Dates: start: 2019, end: 2019
  3. RAMUCIRUMAB [Suspect]
     Active Substance: RAMUCIRUMAB
     Indication: GASTRIC CANCER
     Dosage: ON DAYS 1, 15 EVERY 3 WEEKS
     Route: 065
     Dates: start: 2019, end: 2019
  4. PACLITAXEL. [Concomitant]
     Active Substance: PACLITAXEL
     Indication: GASTRIC CANCER
     Dosage: ON DAYS 1, 8, 15 EVERY 3 WEEKS
     Route: 065
     Dates: start: 2019, end: 2019

REACTIONS (2)
  - Spinal epidural haematoma [Recovering/Resolving]
  - Drug ineffective [Unknown]

NARRATIVE: CASE EVENT DATE: 2019
